FAERS Safety Report 23425631 (Version 1)
Quarter: 2024Q1

REPORT INFORMATION
  Report Type: Spontaneous
  Country: US (occurrence: US)
  Receive Date: 20240122
  Receipt Date: 20240122
  Transmission Date: 20240410
  Serious: Yes (Other)
  Sender: FDA-Public Use
  Company Number: US-AMGEN-USASP2024008511

PATIENT
  Sex: Male

DRUGS (12)
  1. RITUXIMAB [Suspect]
     Active Substance: RITUXIMAB
     Indication: Orbital cyst
     Dosage: UNK, Q2WK (BIMONTHLY)
     Route: 065
  2. HYDROXYCHLOROQUINE [Concomitant]
     Active Substance: HYDROXYCHLOROQUINE
     Indication: Still^s disease
     Dosage: UNK
     Route: 065
  3. HYDROXYCHLOROQUINE [Concomitant]
     Active Substance: HYDROXYCHLOROQUINE
     Indication: Orbital cyst
  4. METHOTREXATE [Concomitant]
     Active Substance: METHOTREXATE
     Indication: Orbital cyst
     Dosage: UNK
     Route: 065
  5. METHOTREXATE [Concomitant]
     Active Substance: METHOTREXATE
     Indication: Still^s disease
  6. PREDNISONE [Concomitant]
     Active Substance: PREDNISONE
     Indication: Orbital cyst
     Dosage: LOW-DOSE, Q2WK (BIMONTHLY)
     Route: 065
  7. MYCOPHENOLATE MOFETIL [Concomitant]
     Active Substance: MYCOPHENOLATE MOFETIL
     Indication: Orbital cyst
     Dosage: UNK
     Route: 065
  8. ADALIMUMAB [Concomitant]
     Active Substance: ADALIMUMAB\ISOPROPYL ALCOHOL
     Indication: Orbital cyst
     Dosage: UNK
     Route: 065
  9. ABATACEPT [Concomitant]
     Active Substance: ABATACEPT
     Indication: Orbital cyst
     Dosage: UNK
     Route: 065
  10. TOCILIZUMAB [Concomitant]
     Active Substance: TOCILIZUMAB
     Indication: Orbital cyst
     Dosage: UNK
     Route: 065
  11. HUMAN IMMUNOGLOBULIN G [Concomitant]
     Active Substance: HUMAN IMMUNOGLOBULIN G
     Indication: Orbital cyst
     Dosage: 1 GRAM PER KILOGRAM, QMO
     Route: 042
  12. HUMAN IMMUNOGLOBULIN G [Concomitant]
     Active Substance: HUMAN IMMUNOGLOBULIN G
     Indication: Xanthogranuloma

REACTIONS (14)
  - Optic neuropathy [Unknown]
  - Orbital infection [Unknown]
  - Exophthalmos [Unknown]
  - Drug ineffective for unapproved indication [Unknown]
  - COVID-19 [Unknown]
  - Corneal scar [Unknown]
  - Xanthogranuloma [Recovering/Resolving]
  - Facial asymmetry [Unknown]
  - Muscle enzyme increased [Unknown]
  - Gene mutation [Unknown]
  - Seasonal allergy [Unknown]
  - Off label use [Unknown]
  - Arthralgia [Unknown]
  - Myalgia [Unknown]
